FAERS Safety Report 8572528-4 (Version None)
Quarter: 2012Q3

REPORT INFORMATION
  Report Type: 
  Country: None (occurrence: None)
  Receive Date: 20120806
  Receipt Date: 20120725
  Transmission Date: 20120928
  Serious: Yes (Other)
  Sender: FDA-Public Use
  Company Number: US-BAYER-2012-075745

PATIENT
  Sex: Female

DRUGS (1)
  1. MIRENA [Suspect]
     Dosage: 20 MCG/24HR, CONT
     Route: 015
     Dates: start: 20090318, end: 20101001

REACTIONS (6)
  - PAIN [None]
  - INJURY [None]
  - EMOTIONAL DISTRESS [None]
  - DEVICE DISLOCATION [None]
  - QUALITY OF LIFE DECREASED [None]
  - ANHEDONIA [None]
